FAERS Safety Report 5496509-2 (Version None)
Quarter: 2007Q4

REPORT INFORMATION
  Report Type: 
  Country: None (occurrence: None)
  Receive Date: 20071025
  Receipt Date: 20070607
  Transmission Date: 20080405
  Serious: No
  Sender: FDA-Public Use
  Company Number: A0654610A

PATIENT
  Age: 69 Year
  Sex: Female

DRUGS (5)
  1. ADVAIR DISKUS 100/50 [Suspect]
     Indication: CHRONIC OBSTRUCTIVE PULMONARY DISEASE
     Dosage: 1PUFF TWICE PER DAY
     Route: 055
     Dates: start: 20020101
  2. LORAZEPAM [Concomitant]
  3. HYDROCODONE [Concomitant]
  4. UNKNOWN MEDICATION [Concomitant]
     Indication: ANXIETY
  5. ALBUTEROL SULFATE [Concomitant]

REACTIONS (3)
  - DIZZINESS [None]
  - DYSPNOEA [None]
  - EAR INFECTION [None]
